FAERS Safety Report 6600719-8 (Version None)
Quarter: 2010Q1

REPORT INFORMATION
  Report Type: 
  Country: None (occurrence: None)
  Receive Date: 20100223
  Receipt Date: 20100223
  Transmission Date: 20100710
  Serious: Yes (Hospitalization, Other)
  Sender: FDA-Public Use
  Company Number: None

PATIENT
  Age: 35 Year
  Sex: Female
  Weight: 73.4827 kg

DRUGS (1)
  1. YAZ [Suspect]
     Indication: CONTRACEPTION
     Dosage: 3MG/0.02MG  1 TABLET ONCE DAILY PO
     Route: 048
     Dates: start: 20040101, end: 20090101

REACTIONS (3)
  - CHOLECYSTITIS INFECTIVE [None]
  - INCISION SITE INFECTION [None]
  - TERMINAL INSOMNIA [None]
